FAERS Safety Report 17588212 (Version 2)
Quarter: 2020Q2

REPORT INFORMATION
  Report Type: Report from Study
  Country: None (occurrence: US)
  Receive Date: 20200327
  Receipt Date: 20200528
  Transmission Date: 20200713
  Serious: Yes (Hospitalization)
  Sender: FDA-Public Use
  Company Number: US-ABBVIE-20K-163-3336998-00

PATIENT
  Sex: Male

DRUGS (2)
  1. HUMIRA [Suspect]
     Active Substance: ADALIMUMAB
     Indication: CROHN^S DISEASE
     Route: 058
  2. LISPRO INSULIN [Suspect]
     Active Substance: INSULIN LISPRO
     Indication: HYPERTENSION
     Route: 065

REACTIONS (9)
  - Blood glucose increased [Unknown]
  - Anxiety [Unknown]
  - Blood glucose decreased [Unknown]
  - Shock hypoglycaemic [Unknown]
  - Nervousness [Unknown]
  - Depression [Unknown]
  - Amnesia [Unknown]
  - Decreased appetite [Unknown]
  - Incorrect dose administered [Unknown]
